FAERS Safety Report 10476171 (Version 1)
Quarter: 2014Q3

REPORT INFORMATION
  Report Type: Report from Study
  Country: US (occurrence: US)
  Receive Date: 20140925
  Receipt Date: 20140925
  Transmission Date: 20150326
  Serious: Yes (Hospitalization, Other)
  Sender: FDA-Public Use
  Company Number: GXBR2014US002044

PATIENT
  Age: 67 Year
  Sex: Male
  Weight: 54.42 kg

DRUGS (3)
  1. ENOXAPARIN SODIUM. [Suspect]
     Active Substance: ENOXAPARIN SODIUM
     Indication: THROMBOSIS
     Dosage: 60 MG, BID
     Route: 058
     Dates: start: 201406
  2. ENOXAPARIN SODIUM. [Suspect]
     Active Substance: ENOXAPARIN SODIUM
     Indication: ACUTE MYELOID LEUKAEMIA
     Dosage: 60 MG, BID
     Route: 058
     Dates: start: 201408
  3. RADIATION THERAPY [Suspect]
     Active Substance: RADIATION THERAPY
     Dosage: UNK DF, UNK
     Dates: end: 20140912

REACTIONS (6)
  - Metastases to meninges [Unknown]
  - Throat irritation [Not Recovered/Not Resolved]
  - Dysphagia [Not Recovered/Not Resolved]
  - Eye irritation [Not Recovered/Not Resolved]
  - Pyrexia [Unknown]
  - Meningitis [Recovering/Resolving]

NARRATIVE: CASE EVENT DATE: 201408
